FAERS Safety Report 13882149 (Version 1)
Quarter: 2017Q3

REPORT INFORMATION
  Report Type: Spontaneous
  Country: US (occurrence: US)
  Receive Date: 20170818
  Receipt Date: 20170818
  Transmission Date: 20171127
  Serious: Yes (Death, Other)
  Sender: FDA-Public Use
  Company Number: US-SA-2017SA148137

PATIENT
  Age: 76 Year
  Sex: Male

DRUGS (4)
  1. VALRUBICIN [Concomitant]
     Active Substance: VALRUBICIN
     Indication: BLADDER CANCER
     Route: 065
  2. BCG FOR IMMUNOTHERAPY [Suspect]
     Active Substance: BACILLUS CALMETTE-GUERIN ANTIGEN, UNSPECIFIED SUBSTRAIN
     Indication: BLADDER CANCER STAGE I, WITH CANCER IN SITU
     Route: 043
  3. INTERFERON ALFA NOS [Concomitant]
     Active Substance: INTERFERON ALFA-2A OR INTERFERON ALFA-2B
     Indication: BLADDER CANCER
  4. BCG FOR IMMUNOTHERAPY [Suspect]
     Active Substance: BACILLUS CALMETTE-GUERIN ANTIGEN, UNSPECIFIED SUBSTRAIN
     Indication: BLADDER CANCER STAGE I, WITH CANCER IN SITU
     Route: 043

REACTIONS (7)
  - Tuberculosis [Fatal]
  - Night sweats [Unknown]
  - Weight decreased [Unknown]
  - Asthenia [Unknown]
  - Infective aneurysm [Fatal]
  - Psoas abscess [Recovering/Resolving]
  - Pyrexia [Recovered/Resolved]
